FAERS Safety Report 12151937 (Version 3)
Quarter: 2016Q3

REPORT INFORMATION
  Report Type: Spontaneous
  Country: JP (occurrence: JP)
  Receive Date: 20160304
  Receipt Date: 20160902
  Transmission Date: 20161109
  Serious: Yes (Death, Other)
  Sender: FDA-Public Use
  Company Number: JP-GILEAD-2016-0200893

PATIENT
  Age: 79 Year
  Sex: Female
  Weight: 46.8 kg

DRUGS (7)
  1. THYRADIN [Concomitant]
     Active Substance: LEVOTHYROXINE
     Indication: HYPOTHYROIDISM
     Dosage: UNK
     Route: 048
     Dates: end: 20160226
  2. SULPIRIDE [Concomitant]
     Active Substance: SULPIRIDE
     Dosage: UNK
     Route: 048
     Dates: end: 20160226
  3. AMOBAN [Concomitant]
     Active Substance: ZOPICLONE
     Indication: INSOMNIA
     Dosage: UNK
     Route: 048
     Dates: end: 20160226
  4. HARVONI [Suspect]
     Active Substance: LEDIPASVIR\SOFOSBUVIR
     Indication: HEPATITIS C
     Dosage: 1 DF, QD
     Route: 048
     Dates: start: 20160108, end: 20160226
  5. SILECE [Concomitant]
     Active Substance: FLUNITRAZEPAM
     Indication: INSOMNIA
     Dosage: UNK
     Route: 048
     Dates: end: 20160226
  6. OPALMON [Concomitant]
     Active Substance: LIMAPROST
     Dosage: UNK
     Route: 048
     Dates: end: 20160226
  7. METHYCOBIDE [Concomitant]
     Dosage: UNK
     Route: 048
     Dates: end: 20160226

REACTIONS (2)
  - Epiglottitis [Fatal]
  - Cardio-respiratory arrest [Fatal]

NARRATIVE: CASE EVENT DATE: 20160226
